FAERS Safety Report 6443750-8 (Version None)
Quarter: 2009Q4

REPORT INFORMATION
  Report Type: 
  Country: None (occurrence: None)
  Receive Date: 20091113
  Receipt Date: 20091102
  Transmission Date: 20100525
  Serious: Yes (Hospitalization, Other)
  Sender: FDA-Public Use
  Company Number: FARBR-1000083

PATIENT
  Age: 41 Year
  Sex: Male

DRUGS (15)
  1. FABRAZYME [Suspect]
     Indication: FABRY'S DISEASE
     Dosage: 20 MG, INTRAVENOUS
     Route: 042
     Dates: start: 20080901
  2. HYDROCORTONE [Concomitant]
  3. ZYRTEC (CETIRISONE HYDROCHLORIDE) [Concomitant]
  4. ALPRAZOLAM [Concomitant]
  5. PHENYTOIN [Concomitant]
  6. OMEPRAZOLE [Concomitant]
  7. VERAPAMIL [Concomitant]
  8. AMITRIPTYLINE HYDROCHLORIDE [Concomitant]
  9. IRBESARTAN [Concomitant]
  10. FOSAMAX [Concomitant]
  11. PARACETAMIL (PARACETAMOL) [Concomitant]
  12. SYMBICORT [Concomitant]
  13. MONTELUKAST SODIUM [Concomitant]
  14. INTAL FORTE [Concomitant]
  15. DEXAMETHASONE TAB [Concomitant]

REACTIONS (8)
  - DYSPNOEA [None]
  - FACE OEDEMA [None]
  - GENERAL PHYSICAL HEALTH DETERIORATION [None]
  - INFUSION RELATED REACTION [None]
  - OEDEMA [None]
  - PERIORBITAL OEDEMA [None]
  - SWOLLEN TONGUE [None]
  - THROAT TIGHTNESS [None]
